FAERS Safety Report 10285953 (Version 3)
Quarter: 2014Q3

REPORT INFORMATION
  Report Type: Spontaneous
  Country: JP (occurrence: JP)
  Receive Date: 20140709
  Receipt Date: 20140923
  Transmission Date: 20150326
  Serious: Yes (Other)
  Sender: FDA-Public Use
  Company Number: JP-ROCHE-1432004

PATIENT
  Age: 76 Year
  Sex: Male

DRUGS (3)
  1. TS-1 [Suspect]
     Active Substance: GIMERACIL\OTERACIL POTASSIUM\TEGAFUR
     Indication: HER-2 POSITIVE GASTRIC CANCER
     Route: 048
  2. DOCETAXEL [Concomitant]
     Active Substance: DOCETAXEL
     Indication: HER-2 POSITIVE GASTRIC CANCER
     Dosage: REPORTED AS ^DOCETAXEL HYDRATE^
     Route: 041
  3. HERCEPTIN [Suspect]
     Active Substance: TRASTUZUMAB
     Indication: HER-2 POSITIVE GASTRIC CANCER
     Route: 041

REACTIONS (1)
  - Myelodysplastic syndrome [Unknown]
